FAERS Safety Report 4371833-5 (Version None)
Quarter: 2004Q2

REPORT INFORMATION
  Report Type: 
  Country: None (occurrence: None)
  Receive Date: 20040602
  Receipt Date: 20020526
  Transmission Date: 20050107
  Serious: Yes (Other)
  Sender: FDA-Public Use
  Company Number: 2004215649US

PATIENT
  Age: 62 Year
  Sex: Female

DRUGS (4)
  1. CELEBREX [Suspect]
     Indication: ARTHRITIS
     Dosage: 200 MG, QD
     Dates: start: 20000101
  2. SYNTHROID [Concomitant]
  3. PREVACID [Concomitant]
  4. ZOCOR [Concomitant]

REACTIONS (1)
  - DERMATITIS HERPETIFORMIS [None]
